FAERS Safety Report 17343166 (Version 2)
Quarter: 2020Q1

REPORT INFORMATION
  Report Type: Spontaneous
  Country: CA (occurrence: CA)
  Receive Date: 20200129
  Receipt Date: 20200202
  Transmission Date: 20200409
  Serious: Yes (Other)
  Sender: FDA-Public Use
  Company Number: CA-PFIZER INC-2019140236

PATIENT
  Age: 67 Year
  Sex: Female

DRUGS (3)
  1. XELJANZ [Concomitant]
     Active Substance: TOFACITINIB CITRATE
     Indication: RHEUMATOID ARTHRITIS
     Dosage: 5 MG, 2X/DAY
     Route: 048
     Dates: start: 201909
  2. SHINGRIX [Concomitant]
     Active Substance: RECOMBINANT VARICELLA ZOSTER VIRUS (VZV) GLYCOPROTEIN E
     Dosage: UNK
     Dates: start: 20190326, end: 20190326
  3. METHOTREXATE SODIUM. [Suspect]
     Active Substance: METHOTREXATE SODIUM
     Indication: RHEUMATOID ARTHRITIS
     Dosage: 25 MG, WEEKLY

REACTIONS (15)
  - Helicobacter infection [Unknown]
  - Intentional product misuse [Unknown]
  - Oesophageal disorder [Unknown]
  - Hypoaesthesia [Unknown]
  - Dyspnoea [Unknown]
  - Drug intolerance [Unknown]
  - Eructation [Unknown]
  - Injection site pain [Unknown]
  - Alopecia [Unknown]
  - Thrombosis [Unknown]
  - Limb discomfort [Unknown]
  - Peripheral swelling [Unknown]
  - Nasopharyngitis [Unknown]
  - Dyspepsia [Unknown]
  - Hyperaesthesia [Unknown]
